FAERS Safety Report 4945343-8 (Version None)
Quarter: 2006Q1

REPORT INFORMATION
  Report Type: 
  Country: None (occurrence: None)
  Receive Date: 20060315
  Receipt Date: 20060315
  Transmission Date: 20060701
  Serious: Yes (Hospitalization)
  Sender: FDA-Public Use
  Company Number: None

PATIENT
  Age: 56 Year
  Sex: Male
  Weight: 98 kg

DRUGS (7)
  1. LITHIUM [Suspect]
     Indication: BIPOLAR DISORDER
     Dosage: 300MG PO BID
     Route: 048
  2. ARIPIPRAZOLE [Concomitant]
  3. AMITRIPTYLINE HCL [Concomitant]
  4. RISPERIDONE [Concomitant]
  5. GABAPENTIN [Concomitant]
  6. PAROXETINE HCL [Concomitant]
  7. TRAZODONE HCL [Concomitant]

REACTIONS (5)
  - ATRIOVENTRICULAR BLOCK SECOND DEGREE [None]
  - DIZZINESS [None]
  - DRUG LEVEL INCREASED [None]
  - PALPITATIONS [None]
  - SYNCOPE [None]
